FAERS Safety Report 9830933 (Version 1)
Quarter: 2014Q1

REPORT INFORMATION
  Report Type: Spontaneous
  Country: US (occurrence: US)
  Receive Date: 20140120
  Receipt Date: 20140120
  Transmission Date: 20141002
  Serious: No
  Sender: FDA-Public Use
  Company Number: US-MYLANLABS-2013S1015437

PATIENT
  Sex: Male

DRUGS (6)
  1. LEVETIRACETAM TABLETS [Suspect]
     Indication: CONVULSION
  2. LEVETIRACETAM TABLETS [Suspect]
     Indication: CONVULSION
  3. FISH OIL [Concomitant]
  4. B6 [Concomitant]
  5. MULTIVITAMIN [Concomitant]
  6. MELATONIN [Concomitant]

REACTIONS (1)
  - Insomnia [Recovering/Resolving]
